FAERS Safety Report 9370682 (Version 2)
Quarter: 2013Q2

REPORT INFORMATION
  Report Type: Spontaneous
  Country: NL (occurrence: NL)
  Receive Date: 20130626
  Receipt Date: 20130626
  Transmission Date: 20140414
  Serious: Yes (Other)
  Sender: FDA-Public Use
  Company Number: NL-TEVA-414283ISR

PATIENT
  Age: 31 Year
  Sex: Male

DRUGS (2)
  1. ACTIQ 400MICROGRAM COMPRESSED LOZENGE [Suspect]
     Indication: NEURALGIA
     Route: 048
  2. GABAPENTIN [Concomitant]

REACTIONS (3)
  - Dependence [Unknown]
  - Overdose [Unknown]
  - Off label use [Unknown]
